FAERS Safety Report 8589698-4 (Version None)
Quarter: 2012Q3

REPORT INFORMATION
  Report Type: 
  Country: None (occurrence: None)
  Receive Date: 20120813
  Receipt Date: 20120730
  Transmission Date: 20120928
  Serious: Yes (Other)
  Sender: FDA-Public Use
  Company Number: JP-ROCHE-1088369

PATIENT
  Age: 84 Year
  Sex: Male
  Weight: 63 kg

DRUGS (10)
  1. RANIBIZUMAB [Suspect]
     Dosage: REGIMEN 4
     Route: 050
     Dates: start: 20100119
  2. BEVACIZUMAB [Concomitant]
     Dates: start: 20081118
  3. VIGAMOX [Concomitant]
     Dates: start: 20090401, end: 20100401
  4. RANIBIZUMAB [Suspect]
     Dosage: REGIMEN 3
     Route: 050
     Dates: start: 20091117
  5. VERTEPORFIN [Suspect]
     Dosage: REGIMEN: 2
     Route: 042
     Dates: start: 20090428
  6. VERTEPORFIN [Suspect]
     Indication: AGE-RELATED MACULAR DEGENERATION
     Route: 042
     Dates: start: 20080512
  7. RANIBIZUMAB [Suspect]
     Dosage: REGIMEN 2
     Route: 050
     Dates: start: 20090519
  8. RANIBIZUMAB [Suspect]
     Indication: AGE-RELATED MACULAR DEGENERATION
     Dosage: REGIMEN 1
     Route: 050
     Dates: start: 20120421
  9. RANIBIZUMAB [Suspect]
     Dosage: REGIMEN 5
     Route: 050
     Dates: start: 20100218
  10. RANIBIZUMAB [Suspect]
     Dosage: REGIMEN 5
     Route: 050

REACTIONS (2)
  - RETINAL PIGMENT EPITHELIAL TEAR [None]
  - DETACHMENT OF RETINAL PIGMENT EPITHELIUM [None]
